FAERS Safety Report 6931549-5 (Version None)
Quarter: 2010Q3

REPORT INFORMATION
  Report Type: 
  Country: None (occurrence: None)
  Receive Date: 20100816
  Receipt Date: 20100812
  Transmission Date: 20110219
  Serious: Yes (Other)
  Sender: FDA-Public Use
  Company Number: AE-810-267

PATIENT
  Sex: Female

DRUGS (1)
  1. LIDODERM [Suspect]
     Dosage: 7 PATCHES

REACTIONS (1)
  - INCORRECT DOSE ADMINISTERED [None]
